FAERS Safety Report 6957834-9 (Version None)
Quarter: 2010Q3

REPORT INFORMATION
  Report Type: 
  Country: None (occurrence: None)
  Receive Date: 20100830
  Receipt Date: 20100830
  Transmission Date: 20110219
  Serious: Yes (Other)
  Sender: FDA-Public Use
  Company Number: None

PATIENT
  Age: 39 Year
  Sex: Male
  Weight: 60 kg

DRUGS (1)
  1. LEVAQUIN [Suspect]
     Indication: INFLUENZA
     Dosage: 1 PILL 500MG TWICE DAILY PO
     Route: 048
     Dates: start: 20100103, end: 20100110

REACTIONS (4)
  - ASTHENIA [None]
  - INSOMNIA [None]
  - TENDONITIS [None]
  - VISION BLURRED [None]
